FAERS Safety Report 6533911-1 (Version None)
Quarter: 2010Q1

REPORT INFORMATION
  Report Type: 
  Country: None (occurrence: None)
  Receive Date: 20100111
  Receipt Date: 20091019
  Transmission Date: 20100710
  Serious: No
  Sender: FDA-Public Use
  Company Number: US-ABBOTT-09P-163-0604242-00

PATIENT
  Sex: Female
  Weight: 90.8 kg

DRUGS (4)
  1. VICODIN [Suspect]
     Indication: ARTHRALGIA
  2. VICODIN [Suspect]
     Indication: BURSITIS
  3. ALEVE (CAPLET) [Concomitant]
     Indication: PAIN
  4. ADVIL [Concomitant]
     Indication: PAIN

REACTIONS (2)
  - DRUG INEFFECTIVE [None]
  - EXPIRED DRUG ADMINISTERED [None]
